FAERS Safety Report 17301339 (Version 2)
Quarter: 2020Q1

REPORT INFORMATION
  Report Type: Spontaneous
  Country: US (occurrence: US)
  Receive Date: 20200122
  Receipt Date: 20200130
  Transmission Date: 20200409
  Serious: No
  Sender: FDA-Public Use
  Company Number: US-GW PHARMA-202001USGW00180

PATIENT

DRUGS (3)
  1. EPIDIOLEX [Suspect]
     Active Substance: CANNABIDIOL
     Dosage: 300 MILLIGRAM, BID
     Route: 048
     Dates: start: 202001
  2. EPIDIOLEX [Suspect]
     Active Substance: CANNABIDIOL
     Dosage: UNK, DOSE INCREASED
     Route: 048
     Dates: start: 20200106, end: 202001
  3. EPIDIOLEX [Suspect]
     Active Substance: CANNABIDIOL
     Indication: LENNOX-GASTAUT SYNDROME
     Dosage: 300 MILLIGRAM, BID
     Route: 048
     Dates: start: 201812, end: 20200105

REACTIONS (3)
  - Mood altered [Recovered/Resolved]
  - Abnormal behaviour [Recovered/Resolved]
  - Sleep terror [Recovered/Resolved]

NARRATIVE: CASE EVENT DATE: 202001
